FAERS Safety Report 25388108 (Version 1)
Quarter: 2025Q2

REPORT INFORMATION
  Report Type: Spontaneous
  Country: US (occurrence: US)
  Receive Date: 20250603
  Receipt Date: 20250603
  Transmission Date: 20250717
  Serious: No
  Sender: TOLMAR
  Company Number: US-Tolmar-TLM-2025-01125

PATIENT
  Age: 11 Year
  Sex: Female

DRUGS (4)
  1. FENSOLVI [Suspect]
     Active Substance: LEUPROLIDE ACETATE
     Indication: Precocious puberty
     Route: 058
     Dates: start: 20250320
  2. FENSOLVI [Suspect]
     Active Substance: LEUPROLIDE ACETATE
     Route: 058
     Dates: start: 20240918
  3. FENSOLVI [Suspect]
     Active Substance: LEUPROLIDE ACETATE
     Dates: start: 20250325
  4. DEVICE [Suspect]
     Active Substance: DEVICE
     Indication: Precocious puberty

REACTIONS (4)
  - Wrong technique in product usage process [Unknown]
  - Device leakage [Unknown]
  - Product packaging quantity issue [Unknown]
  - Device use error [Unknown]

NARRATIVE: CASE EVENT DATE: 20250320
